FAERS Safety Report 17008486 (Version 1)
Quarter: 2019Q4

REPORT INFORMATION
  Report Type: Spontaneous
  Country: CA (occurrence: CA)
  Receive Date: 20191108
  Receipt Date: 20191108
  Transmission Date: 20200122
  Serious: Yes (Other)
  Sender: FDA-Public Use
  Company Number: CA-SA-2019SA303197

PATIENT
  Sex: Female

DRUGS (12)
  1. ARAVA [Suspect]
     Active Substance: LEFLUNOMIDE
  2. SULFASALAZINE. [Suspect]
     Active Substance: SULFASALAZINE
  3. RIFAMYCIN [Suspect]
     Active Substance: RIFAMYCIN
  4. AZATHIOPRINE. [Suspect]
     Active Substance: AZATHIOPRINE
  5. SIMPONI [Concomitant]
     Active Substance: GOLIMUMAB
     Route: 058
  6. HYDROXYCHLOROQUINE SULFATE. [Concomitant]
     Active Substance: HYDROXYCHLOROQUINE SULFATE
  7. METHOTREXATE. [Suspect]
     Active Substance: METHOTREXATE
  8. ENBREL [Suspect]
     Active Substance: ETANERCEPT
  9. RITUXIMAB. [Concomitant]
     Active Substance: RITUXIMAB
     Dosage: 500 MG, QOW
     Route: 042
  10. DICLOFENAC [Suspect]
     Active Substance: DICLOFENAC
  11. RITUXIMAB. [Concomitant]
     Active Substance: RITUXIMAB
     Dosage: 500 MG, QOW
     Route: 042
  12. ISONIAZID. [Suspect]
     Active Substance: ISONIAZID

REACTIONS (9)
  - Lung disorder [Not Recovered/Not Resolved]
  - Fatigue [Not Recovered/Not Resolved]
  - Interstitial lung disease [Not Recovered/Not Resolved]
  - Treatment failure [Unknown]
  - Rheumatoid arthritis [Not Recovered/Not Resolved]
  - Iron deficiency anaemia [Not Recovered/Not Resolved]
  - Abdominal discomfort [Not Recovered/Not Resolved]
  - Renal impairment [Not Recovered/Not Resolved]
  - Gastrointestinal disorder [Not Recovered/Not Resolved]
